FAERS Safety Report 8456497-3 (Version None)
Quarter: 2012Q2

REPORT INFORMATION
  Report Type: 
  Country: None (occurrence: None)
  Receive Date: 20120621
  Receipt Date: 20120613
  Transmission Date: 20120825
  Serious: Yes (Hospitalization)
  Sender: FDA-Public Use
  Company Number: CA-ROCHE-1078891

PATIENT
  Sex: Female
  Weight: 83.99 kg

DRUGS (7)
  1. MABTHERA [Suspect]
     Indication: RHEUMATOID ARTHRITIS
     Dosage: FREQUENCY DAY 1 AND DAY 15
     Route: 042
     Dates: start: 20100617
  2. MORPHINE [Concomitant]
     Route: 065
  3. VITAMIN D [Concomitant]
     Route: 065
  4. CALCIUM [Concomitant]
     Route: 065
  5. METHOTREXATE [Concomitant]
     Route: 065
  6. PREDNISONE TAB [Concomitant]
     Route: 065
  7. IRON [Concomitant]
     Route: 065

REACTIONS (3)
  - ULCER [None]
  - CELLULITIS [None]
  - ABDOMINAL WALL DISORDER [None]
